FAERS Safety Report 6202392-X (Version None)
Quarter: 2009Q2

REPORT INFORMATION
  Report Type: 
  Country: None (occurrence: None)
  Receive Date: 20090521
  Receipt Date: 20090521
  Transmission Date: 20091009
  Serious: No
  Sender: FDA-Public Use
  Company Number: None

PATIENT
  Age: 50 Year
  Sex: Female
  Weight: 77.1115 kg

DRUGS (4)
  1. SKELAXIN [Suspect]
     Indication: MUSCLE RELAXANT THERAPY
     Dosage: ONE AT NIGHT
     Dates: start: 20090417
  2. SKELAXIN [Suspect]
     Indication: MUSCLE RELAXANT THERAPY
     Dosage: ONE AT NIGHT
     Dates: start: 20090418
  3. SKELAXIN [Suspect]
     Indication: MUSCLE RELAXANT THERAPY
     Dosage: ONE AT NIGHT
     Dates: start: 20090419
  4. SKELAXIN [Suspect]
     Indication: MUSCLE RELAXANT THERAPY
     Dosage: ONE AT NIGHT
     Dates: start: 20090420

REACTIONS (1)
  - PAIN IN EXTREMITY [None]
